FAERS Safety Report 14342779 (Version 1)
Quarter: 2017Q4

REPORT INFORMATION
  Report Type: Spontaneous
  Country: US (occurrence: US)
  Receive Date: 20171229
  Receipt Date: 20171229
  Transmission Date: 20180321
  Serious: Yes (Hospitalization)
  Sender: FDA-Public Use
  Company Number: None

PATIENT
  Age: 66 Year
  Sex: Female

DRUGS (14)
  1. GABEPENTIN [Concomitant]
  2. VITAMIN D [Concomitant]
     Active Substance: CHOLECALCIFEROL
  3. LISINOPRIL. [Concomitant]
     Active Substance: LISINOPRIL
  4. ONDANSETRON [Concomitant]
     Active Substance: ONDANSETRON
  5. IBRANCE [Suspect]
     Active Substance: PALBOCICLIB
     Indication: NEOPLASM MALIGNANT
     Route: 048
     Dates: start: 20161206
  6. FLAGYL [Concomitant]
     Active Substance: METRONIDAZOLE\METRONIDAZOLE HYDROCHLORIDE
  7. MORPHINE [Concomitant]
     Active Substance: MORPHINE
  8. MIRTAZAPINE. [Concomitant]
     Active Substance: MIRTAZAPINE
  9. METOCLOPRAM [Concomitant]
     Active Substance: METOCLOPRAMIDE
  10. CARVEDILOL. [Concomitant]
     Active Substance: CARVEDILOL
  11. LETROZOLE. [Concomitant]
     Active Substance: LETROZOLE
  12. OXYCODONE [Concomitant]
     Active Substance: OXYCODONE
  13. SERTRALINE [Concomitant]
     Active Substance: SERTRALINE HYDROCHLORIDE
  14. ATORVASTATIN [Concomitant]
     Active Substance: ATORVASTATIN

REACTIONS (1)
  - Infection [None]

NARRATIVE: CASE EVENT DATE: 20171228
